FAERS Safety Report 9127975 (Version 1)
Quarter: 2013Q1

REPORT INFORMATION
  Report Type: Spontaneous
  Country: US (occurrence: US)
  Receive Date: 20130125
  Receipt Date: 20130125
  Transmission Date: 20140127
  Serious: Yes (Death)
  Sender: FDA-Public Use
  Company Number: PHHY2013US006762

PATIENT
  Age: 46 Year
  Sex: Male

DRUGS (1)
  1. METFORMIN [Suspect]
     Dosage: UNK UKN, UNK (INGESTIONAL)

REACTIONS (1)
  - Completed suicide [Fatal]
